FAERS Safety Report 10931633 (Version 1)
Quarter: 2015Q1

REPORT INFORMATION
  Report Type: Spontaneous
  Country: US (occurrence: US)
  Receive Date: 20150319
  Receipt Date: 20150319
  Transmission Date: 20150721
  Serious: No
  Sender: FDA-Public Use
  Company Number: US-BAUSCH-BL-2014-004104

PATIENT
  Sex: Female
  Weight: 63.56 kg

DRUGS (1)
  1. RENOVA [Suspect]
     Active Substance: TRETINOIN
     Indication: SKIN WRINKLING
     Dosage: APPLIED TO THE FOREHEAD, CHIN, AND CHEEKS, 3 DAYS PER WEEK
     Route: 061
     Dates: start: 2009

REACTIONS (3)
  - Erythema [Recovering/Resolving]
  - Dry skin [Recovering/Resolving]
  - Feeling hot [Recovering/Resolving]
